FAERS Safety Report 20318527 (Version 9)
Quarter: 2022Q3

REPORT INFORMATION
  Report Type: Report from Study
  Country: GB (occurrence: GB)
  Receive Date: 20220110
  Receipt Date: 20220829
  Transmission Date: 20221027
  Serious: Yes (Other)
  Sender: FDA-Public Use
  Company Number: GB-ROCHE-2986460

PATIENT
  Age: 62 Year
  Sex: Female
  Weight: 81.6 kg

DRUGS (23)
  1. BEVACIZUMAB [Suspect]
     Active Substance: BEVACIZUMAB
     Indication: Non-small cell lung cancer metastatic
     Dosage: 1200 MG
     Route: 065
     Dates: start: 20211111
  2. CARBOPLATIN [Suspect]
     Active Substance: CARBOPLATIN
     Indication: Non-small cell lung cancer metastatic
     Dosage: 700 MG
     Route: 065
     Dates: start: 20211111
  3. PACLITAXEL [Suspect]
     Active Substance: PACLITAXEL
     Indication: Non-small cell lung cancer metastatic
     Dosage: 420 MG
     Route: 065
     Dates: start: 20211111
  4. ATEZOLIZUMAB [Suspect]
     Active Substance: ATEZOLIZUMAB
     Indication: Non-small cell lung cancer metastatic
     Dosage: 1200 MG INFUSION
     Route: 041
     Dates: start: 20211111
  5. CHLORHEXIDINE [Concomitant]
     Active Substance: CHLORHEXIDINE
     Indication: Prophylaxis
     Dosage: UNK, 4X/DAY
     Route: 065
     Dates: start: 20211021
  6. OMEPRAZOLE [Concomitant]
     Active Substance: OMEPRAZOLE
     Indication: Prophylaxis
     Dosage: UNK, 1X/DAY
     Route: 065
     Dates: end: 20220111
  7. ORAMORPH SR SUSTAINED RELEASE [Concomitant]
     Active Substance: MORPHINE SULFATE
     Dosage: UNK, AS NEEDED
     Route: 065
     Dates: start: 20210913
  8. ACETAMINOPHEN [Concomitant]
     Active Substance: ACETAMINOPHEN
     Dosage: UNK, AS NEEDED
     Route: 065
     Dates: start: 20211019
  9. RIVAROXABAN [Concomitant]
     Active Substance: RIVAROXABAN
     Indication: Prophylaxis
     Dosage: UNK, 1X/DAY
     Route: 065
  10. ROSUVASTATIN [Concomitant]
     Active Substance: ROSUVASTATIN
     Indication: Prophylaxis
     Dosage: UNK, 1X/DAY
     Route: 065
     Dates: start: 20210114
  11. DEXAMETHASONE [Concomitant]
     Active Substance: DEXAMETHASONE
     Indication: Prophylaxis
     Dosage: UNK UNK, 2X/DAY
     Route: 065
     Dates: start: 20211112, end: 20211114
  12. DOMPERIDONE [Concomitant]
     Active Substance: DOMPERIDONE
     Indication: Prophylaxis
     Dosage: UNK, 4X/DAY
     Route: 065
     Dates: start: 20211112, end: 20211116
  13. METFORMIN [Concomitant]
     Active Substance: METFORMIN HYDROCHLORIDE
     Indication: Prophylaxis
     Dosage: UNK, 2X/DAY
     Route: 065
     Dates: start: 20180101
  14. PEGFILGRASTIM [Concomitant]
     Active Substance: PEGFILGRASTIM
     Dosage: UNK
     Dates: start: 20211022, end: 20211112
  15. CARBOHYDRATES\FATTY ACIDS\MINERALS\PROTEIN\VITAMINS [Concomitant]
     Active Substance: CARBOHYDRATES\FATTY ACIDS\MINERALS\PROTEIN\VITAMINS
     Dosage: UNK
  16. CALCIUM CARBONATE\CHOLECALCIFEROL [Concomitant]
     Active Substance: CALCIUM CARBONATE\CHOLECALCIFEROL
     Indication: Vitamin supplementation
     Dosage: UNK, 2X/DAY
     Route: 065
     Dates: start: 20210622
  17. ALECTINIB [Concomitant]
     Active Substance: ALECTINIB
     Indication: Neoplasm malignant
  18. CRIZOTINIB [Concomitant]
     Active Substance: CRIZOTINIB
     Indication: Neoplasm malignant
  19. CRIZOTINIB [Concomitant]
     Active Substance: CRIZOTINIB
     Indication: Neoplasm malignant
  20. LORLATINIB [Concomitant]
     Active Substance: LORLATINIB
     Indication: Neoplasm malignant
  21. LORLATINIB [Concomitant]
     Active Substance: LORLATINIB
     Indication: Neoplasm malignant
  22. PENICILLIN [Concomitant]
     Active Substance: PENICILLIN
     Dosage: UNK, 1X/DAY
     Route: 065
     Dates: start: 20220607, end: 20220614
  23. RAMIPRIL [Concomitant]
     Active Substance: RAMIPRIL
     Dosage: UNK
     Route: 065
     Dates: start: 20220601

REACTIONS (2)
  - Neuropathy peripheral [Not Recovered/Not Resolved]
  - Hypomagnesaemia [Not Recovered/Not Resolved]

NARRATIVE: CASE EVENT DATE: 20211112
